FAERS Safety Report 7783015-5 (Version None)
Quarter: 2011Q3

REPORT INFORMATION
  Report Type: 
  Country: None (occurrence: None)
  Receive Date: 20110928
  Receipt Date: 20110927
  Transmission Date: 20111222
  Serious: Yes (Other)
  Sender: FDA-Public Use
  Company Number: US-PFIZER INC-2011230409

PATIENT
  Sex: Female
  Weight: 70.295 kg

DRUGS (1)
  1. CHANTIX [Suspect]
     Dosage: UNK
     Dates: start: 20110917, end: 20110925

REACTIONS (1)
  - VERTIGO [None]
